FAERS Safety Report 16118447 (Version 1)
Quarter: 2019Q1

REPORT INFORMATION
  Report Type: Spontaneous
  Country: US (occurrence: US)
  Receive Date: 20190326
  Receipt Date: 20190326
  Transmission Date: 20190418
  Serious: Yes (Death, Hospitalization, Other)
  Sender: FDA-Public Use
  Company Number: US-MTPC-MTDA2019-0004902

PATIENT

DRUGS (2)
  1. RADICAVA [Suspect]
     Active Substance: EDARAVONE
     Indication: AMYOTROPHIC LATERAL SCLEROSIS
     Dosage: 60 MG IV INFUSION OVER A 60-MINUTE PERIOD GIVEN 10 DAYS EVERY MONTH
     Route: 041
     Dates: start: 20180109, end: 20180911
  2. RILUZOLE. [Concomitant]
     Active Substance: RILUZOLE

REACTIONS (13)
  - Gastrointestinal tube insertion [Unknown]
  - Dyspnoea [Not Recovered/Not Resolved]
  - Dysphonia [Unknown]
  - Allodynia [Not Recovered/Not Resolved]
  - Restless legs syndrome [Unknown]
  - Dysarthria [Unknown]
  - Tongue movement disturbance [Unknown]
  - Death [Fatal]
  - Fall [Recovered/Resolved]
  - Muscular weakness [Not Recovered/Not Resolved]
  - Muscle contractions involuntary [Unknown]
  - Tongue atrophy [Unknown]
  - Herpes zoster [Unknown]

NARRATIVE: CASE EVENT DATE: 201804
